FAERS Safety Report 12472251 (Version 2)
Quarter: 2016Q3

REPORT INFORMATION
  Report Type: Spontaneous
  Country: US (occurrence: US)
  Receive Date: 20160616
  Receipt Date: 20160912
  Transmission Date: 20161109
  Serious: Yes (Death, Hospitalization, Other)
  Sender: FDA-Public Use
  Company Number: US-PFIZER INC-2016303230

PATIENT
  Age: 59 Year
  Sex: Male

DRUGS (1)
  1. DEPO-TESTOSTERONE [Suspect]
     Active Substance: TESTOSTERONE CYPIONATE
     Indication: HORMONE REPLACEMENT THERAPY
     Dosage: UNK
     Dates: start: 2000, end: 2014

REACTIONS (5)
  - Mycobacterium fortuitum infection [Fatal]
  - Myocardial infarction [Unknown]
  - Bacterial sepsis [Fatal]
  - Arterial occlusive disease [Unknown]
  - Chest pain [Unknown]

NARRATIVE: CASE EVENT DATE: 20131001
